FAERS Safety Report 19272119 (Version 1)
Quarter: 2021Q2

REPORT INFORMATION
  Report Type: Spontaneous
  Country: AU (occurrence: AU)
  Receive Date: 20210519
  Receipt Date: 20210519
  Transmission Date: 20210717
  Serious: Yes (Other)
  Sender: FDA-Public Use
  Company Number: AU-COLGATE PALMOLIVE COMPANY-20210501148

PATIENT
  Sex: Female

DRUGS (4)
  1. SAVACOL RINSE REGULAR [Suspect]
     Active Substance: BENZOCAINE\CHLORHEXIDINE HYDROCHLORIDE
     Dosage: UNKNOWN DOSE, USED APPROXIMATELY 06.00HRS
     Dates: start: 20210507, end: 20210507
  2. SAVACOL RINSE REGULAR [Suspect]
     Active Substance: BENZOCAINE\CHLORHEXIDINE HYDROCHLORIDE
     Dosage: UNKNOWN DOSE, USED PRIOR TO BED
     Dates: start: 20210506, end: 20210506
  3. SAVACOL RINSE REGULAR [Suspect]
     Active Substance: BENZOCAINE\CHLORHEXIDINE HYDROCHLORIDE
     Dosage: UNKNOWN DOSE
     Dates: start: 20210508, end: 20210508
  4. PARACETAMOL CODEINE [Concomitant]
     Active Substance: ACETAMINOPHEN\CODEINE PHOSPHATE

REACTIONS (11)
  - Pruritus [Unknown]
  - Eye swelling [Unknown]
  - Lip erythema [Unknown]
  - Swelling face [Recovering/Resolving]
  - Blood pressure systolic decreased [Unknown]
  - Swelling [Unknown]
  - Lip swelling [Unknown]
  - Urticaria [Recovering/Resolving]
  - Ocular hyperaemia [Unknown]
  - Ear swelling [Unknown]
  - Erythema [Unknown]

NARRATIVE: CASE EVENT DATE: 20210507
